FAERS Safety Report 15783254 (Version 1)
Quarter: 2019Q1

REPORT INFORMATION
  Report Type: Report from Study
  Country: US (occurrence: US)
  Receive Date: 20190102
  Receipt Date: 20190102
  Transmission Date: 20190417
  Serious: Yes (Hospitalization, Other)
  Sender: FDA-Public Use
  Company Number: US-SA-2018SA341896

PATIENT
  Age: 69 Year
  Sex: Female

DRUGS (3)
  1. INSULIN GLULISINE [Suspect]
     Active Substance: INSULIN GLULISINE
     Indication: TYPE 2 DIABETES MELLITUS
     Dosage: 24 U, QD
     Route: 058
  2. TOUJEO [Concomitant]
     Active Substance: INSULIN GLARGINE
     Indication: TYPE 2 DIABETES MELLITUS
     Dosage: 30 U, QD
     Route: 058
  3. LOVENOX [Concomitant]
     Active Substance: ENOXAPARIN SODIUM
     Dosage: UNK UNK, UNK
     Route: 058

REACTIONS (6)
  - Cardiac operation [Unknown]
  - Arterial therapeutic procedure [Unknown]
  - Cataract operation [Unknown]
  - Pain [Not Recovered/Not Resolved]
  - Cardiac pacemaker insertion [Unknown]
  - Needle issue [Unknown]

NARRATIVE: CASE EVENT DATE: 201603
